FAERS Safety Report 7662165-8 (Version None)
Quarter: 2011Q3

REPORT INFORMATION
  Report Type: 
  Country: None (occurrence: None)
  Receive Date: 20110805
  Receipt Date: 20101220
  Transmission Date: 20111222
  Serious: No
  Sender: FDA-Public Use
  Company Number: US-ABBOTT-10P-163-0692741-00

PATIENT
  Sex: Male
  Weight: 93.07 kg

DRUGS (7)
  1. ZOLPIDEM [Suspect]
     Indication: INSOMNIA
     Dosage: UNKNOWN STRENGTH
     Route: 048
     Dates: start: 20100101
  2. SIMVASTATIN [Concomitant]
     Indication: BLOOD CHOLESTEROL
     Route: 048
  3. NIASPAN [Suspect]
     Indication: HIGH DENSITY LIPOPROTEIN DECREASED
     Route: 048
     Dates: start: 20101201, end: 20101218
  4. NIASPAN [Suspect]
     Route: 048
     Dates: start: 20090101, end: 20090101
  5. NIASPAN [Suspect]
     Route: 048
     Dates: start: 20101101, end: 20101201
  6. METOPROLOL SUCCINATE [Concomitant]
     Indication: HYPERTENSION
     Route: 048
  7. COQ10 [Concomitant]
     Indication: PRODUCT USED FOR UNKNOWN INDICATION
     Dosage: ONECE DAILY WITH SIMVASTATIN
     Route: 048

REACTIONS (2)
  - PARAESTHESIA [None]
  - NIGHTMARE [None]
